FAERS Safety Report 5677265-1 (Version None)
Quarter: 2008Q1

REPORT INFORMATION
  Report Type: 
  Country: None (occurrence: None)
  Receive Date: 20080321
  Receipt Date: 20080321
  Transmission Date: 20080703
  Serious: Yes (Life-Threatening, Hospitalization)
  Sender: FDA-Public Use
  Company Number: None

PATIENT
  Age: 53 Year
  Sex: Male
  Weight: 100 kg

DRUGS (2)
  1. ZOMETA [Suspect]
     Indication: OSTEOPOROSIS
     Dosage: 4MG Q 90 DAYS IV
     Route: 042
     Dates: start: 20071024
  2. ZOMETA [Suspect]
     Indication: OSTEOPOROSIS
     Dosage: 4MG Q 90 DAYS IV
     Route: 042
     Dates: start: 20080125

REACTIONS (2)
  - BRAIN NEOPLASM [None]
  - NEOPLASM PROGRESSION [None]
